FAERS Safety Report 8896150 (Version 1)
Quarter: 2012Q4

REPORT INFORMATION
  Report Type: 
  Country: US (occurrence: US)
  Receive Date: 20121108
  Receipt Date: 20121108
  Transmission Date: 20130627
  Serious: Yes (Other)
  Sender: FDA-Public Use
  Company Number: US-SP-2012-10303

PATIENT

DRUGS (1)
  1. TUBERSOL [Suspect]
     Indication: TUBERCULIN TEST
     Route: 023

REACTIONS (4)
  - Injection site cellulitis [Recovered/Resolved]
  - Injection site inflammation [Recovered/Resolved]
  - Injection site vesicles [Recovered/Resolved]
  - Injection site swelling [None]
